FAERS Safety Report 4606712-9 (Version None)
Quarter: 2005Q1

REPORT INFORMATION
  Report Type: 
  Country: None (occurrence: None)
  Receive Date: 20050311
  Receipt Date: 20050224
  Transmission Date: 20050727
  Serious: Yes (Death)
  Sender: FDA-Public Use
  Company Number: 2005S1000790

PATIENT
  Age: 44 Year
  Sex: Male

DRUGS (12)
  1. CLOZAPINE [Suspect]
     Indication: SCHIZOPHRENIA
     Dosage: SEE IMAGE
     Route: 048
     Dates: start: 20040501
  2. CLOZAPINE [Suspect]
     Indication: SCHIZOPHRENIA
     Dosage: SEE IMAGE
     Route: 048
     Dates: start: 20040501
  3. CHLORDIAZEPOXIDE [Concomitant]
  4. BENZTRONE [Concomitant]
  5. DEPAKOTE [Concomitant]
  6. PROTONIX [Concomitant]
  7. DICLOFENAC [Concomitant]
  8. BUSIPIRONE [Concomitant]
  9. RISPERDAL [Concomitant]
  10. ZOLOFT [Concomitant]
  11. LIPITOR [Concomitant]
  12. LORAZEPAM [Concomitant]

REACTIONS (1)
  - MYOCARDIAL INFARCTION [None]
